FAERS Safety Report 5153809-3 (Version None)
Quarter: 2006Q4

REPORT INFORMATION
  Report Type: 
  Country: None (occurrence: None)
  Receive Date: 20061120
  Receipt Date: 20061114
  Transmission Date: 20070319
  Serious: Yes (Other)
  Sender: FDA-Public Use
  Company Number: LB-BAYER-200615752GDS

PATIENT
  Age: 37 Year
  Sex: Female

DRUGS (4)
  1. NIFEDIPINE [Suspect]
     Indication: TOCOLYSIS
     Dosage: TOTAL DAILY DOSE: 160 MG  UNIT DOSE: 40 MG
     Route: 048
  2. NIFEDIPINE [Suspect]
     Dosage: TOTAL DAILY DOSE: 40 MG  UNIT DOSE: 20 MG
     Route: 060
  3. BETAMETHASONE BENZOATE [Suspect]
     Indication: DRUG USE FOR UNKNOWN INDICATION
     Route: 030
  4. CLARITHROMYCIN [Concomitant]
     Indication: DRUG USE FOR UNKNOWN INDICATION
     Dosage: TOTAL DAILY DOSE: 1000 MG  UNIT DOSE: 500 MG
     Route: 042

REACTIONS (11)
  - CAESAREAN SECTION [None]
  - CHEST X-RAY ABNORMAL [None]
  - DYSPNOEA [None]
  - FLUID RETENTION [None]
  - HYPOXIA [None]
  - ORTHOPNOEA [None]
  - PULMONARY OEDEMA [None]
  - RESPIRATORY ALKALOSIS [None]
  - SODIUM RETENTION [None]
  - TACHYCARDIA [None]
  - TACHYPNOEA [None]
